FAERS Safety Report 6404591-0 (Version None)
Quarter: 2009Q4

REPORT INFORMATION
  Report Type: 
  Country: None (occurrence: None)
  Receive Date: 20091016
  Receipt Date: 20091006
  Transmission Date: 20100525
  Serious: Yes (Hospitalization)
  Sender: FDA-Public Use
  Company Number: US-JNJFOC-20091003632

PATIENT
  Sex: Female
  Weight: 72.6 kg

DRUGS (8)
  1. INFLIXIMAB [Suspect]
     Indication: INFLAMMATORY BOWEL DISEASE
     Route: 042
     Dates: start: 20060315, end: 20070301
  2. TYLENOL [Concomitant]
  3. 5-AMINOSALICYLIC ACID [Concomitant]
     Route: 048
  4. FERROUS SULFATE TAB [Concomitant]
  5. OMEGA 3 FATTY ACID [Concomitant]
  6. KENALOG [Concomitant]
  7. MULTI-VITAMINS [Concomitant]
  8. FLUCONAZOLE [Concomitant]
     Route: 048

REACTIONS (1)
  - WOUND DEHISCENCE [None]
